FAERS Safety Report 19699413 (Version 1)
Quarter: 2021Q3

REPORT INFORMATION
  Report Type: Spontaneous
  Country: FR (occurrence: FR)
  Receive Date: 20210813
  Receipt Date: 20210813
  Transmission Date: 20211014
  Serious: Yes (Death)
  Sender: FDA-Public Use
  Company Number: FR-TEVA-2021-FR-1940460

PATIENT
  Age: 54 Year
  Sex: Male

DRUGS (2)
  1. COCAINE [Suspect]
     Active Substance: COCAINE
     Dosage: UNKNOWN
     Route: 065
     Dates: end: 2020
  2. CHLORHYDRATE DE PAROXETINE ANHYDRE [Suspect]
     Active Substance: PAROXETINE
     Dosage: UNKNOWN
     Route: 065
     Dates: end: 2020

REACTIONS (2)
  - Aspiration [Fatal]
  - Drug abuse [Fatal]
